FAERS Safety Report 26178058 (Version 1)
Quarter: 2025Q4

REPORT INFORMATION
  Report Type: Spontaneous
  Country: JP (occurrence: JP)
  Receive Date: 20251219
  Receipt Date: 20251219
  Transmission Date: 20260117
  Serious: Yes (Death, Other)
  Sender: SANDOZ
  Company Number: JP-SANDOZ-SDZ2025JP095318

PATIENT

DRUGS (4)
  1. DIPRIVAN [Suspect]
     Active Substance: PROPOFOL
     Indication: Product used for unknown indication
     Dosage: UNK
     Route: 065
  2. BROTIZOLAM [Suspect]
     Active Substance: BROTIZOLAM
     Indication: Product used for unknown indication
     Dosage: UNK
     Route: 065
  3. ROCURONIUM BROMIDE [Suspect]
     Active Substance: ROCURONIUM BROMIDE
     Indication: Product used for unknown indication
     Dosage: UNK
     Route: 065
  4. ZOLPIDEM TARTRATE [Suspect]
     Active Substance: ZOLPIDEM TARTRATE
     Indication: Product used for unknown indication
     Dosage: UNK
     Route: 065

REACTIONS (1)
  - Drug abuse [Fatal]
